FAERS Safety Report 8314757-0 (Version None)
Quarter: 2012Q2

REPORT INFORMATION
  Report Type: 
  Country: None (occurrence: None)
  Receive Date: 20120426
  Receipt Date: 20120420
  Transmission Date: 20120825
  Serious: Yes (Other)
  Sender: FDA-Public Use
  Company Number: GB-ELI_LILLY_AND_COMPANY-GB201204008092

PATIENT
  Sex: Female

DRUGS (1)
  1. BYDUREON [Suspect]
     Dosage: 2 MG, UNK
     Dates: start: 20120418, end: 20120418

REACTIONS (3)
  - SWOLLEN TONGUE [None]
  - DIZZINESS [None]
  - DYSPNOEA [None]
